FAERS Safety Report 10423022 (Version 1)
Quarter: 2014Q3

REPORT INFORMATION
  Report Type: Spontaneous
  Country: US (occurrence: None)
  Receive Date: 20140709
  Receipt Date: 20140709
  Transmission Date: 20150326
  Serious: Yes (Other)
  Sender: FDA-Public Use
  Company Number: PHEH2013US022213

PATIENT
  Sex: Female

DRUGS (2)
  1. GLEEVEC [Suspect]
     Active Substance: IMATINIB MESYLATE
  2. DASATINIB (DASATINIB) [Suspect]
     Active Substance: DASATINIB

REACTIONS (2)
  - Pleural effusion [None]
  - Drug intolerance [None]
